FAERS Safety Report 8079101-5 (Version None)
Quarter: 2012Q1

REPORT INFORMATION
  Report Type: 
  Country: None (occurrence: None)
  Receive Date: 20120128
  Receipt Date: 20110816
  Transmission Date: 20120608
  Serious: No
  Sender: FDA-Public Use
  Company Number: US-ABBOTT-11P-163-0847778-00

PATIENT
  Sex: Male

DRUGS (4)
  1. HUMIRA [Suspect]
     Indication: COLITIS ULCERATIVE
     Route: 058
     Dates: start: 20110401, end: 20110401
  2. HUMIRA [Suspect]
     Route: 058
     Dates: start: 20110401, end: 20110401
  3. SULFASALIZINE [Concomitant]
     Indication: COLITIS ULCERATIVE
  4. HUMIRA [Suspect]
     Route: 058
     Dates: start: 20110501

REACTIONS (2)
  - INJECTION SITE URTICARIA [None]
  - INJECTION SITE PRURITUS [None]
